FAERS Safety Report 14373156 (Version 1)
Quarter: 2018Q1

REPORT INFORMATION
  Report Type: Spontaneous
  Country: CA (occurrence: CA)
  Receive Date: 20180110
  Receipt Date: 20180110
  Transmission Date: 20180509
  Serious: Yes (Other)
  Sender: FDA-Public Use
  Company Number: CA-PFIZER INC-2018009028

PATIENT
  Age: 51 Year
  Sex: Female

DRUGS (8)
  1. METHOTREXATE SODIUM. [Suspect]
     Active Substance: METHOTREXATE SODIUM
     Indication: RHEUMATOID ARTHRITIS
     Dosage: 2 TABS WEEK
     Route: 048
  2. PANTOPRAZOLE [Concomitant]
     Active Substance: PANTOPRAZOLE
     Dosage: UNK
  3. FOLIC ACID. [Concomitant]
     Active Substance: FOLIC ACID
     Dosage: UNK
  4. ROSUVASTATIN. [Concomitant]
     Active Substance: ROSUVASTATIN
     Dosage: UNK
  5. VITAMINE D [Concomitant]
     Dosage: UNK
  6. IBUPROFEN. [Concomitant]
     Active Substance: IBUPROFEN
     Dosage: UNK
  7. AMITRIPTYLINE [Concomitant]
     Active Substance: AMITRIPTYLINE
     Dosage: UNK
  8. RAMIPRIL. [Concomitant]
     Active Substance: RAMIPRIL
     Dosage: UNK

REACTIONS (4)
  - Drug ineffective [Unknown]
  - Malaise [Unknown]
  - Cardiac flutter [Unknown]
  - Influenza [Recovered/Resolved]
